FAERS Safety Report 20577266 (Version 1)
Quarter: 2022Q1

REPORT INFORMATION
  Report Type: Spontaneous
  Country: US (occurrence: None)
  Receive Date: 20220309
  Receipt Date: 20220309
  Transmission Date: 20220424
  Serious: Yes (Hospitalization)
  Sender: FDA-Public Use
  Company Number: None

PATIENT
  Sex: Female

DRUGS (1)
  1. HUMIRA [Suspect]
     Active Substance: ADALIMUMAB
     Indication: Proctitis ulcerative
     Dosage: FREQUENCY : WEEKLY;?
     Route: 058
     Dates: start: 202201

REACTIONS (7)
  - Condition aggravated [None]
  - Inappropriate schedule of product administration [None]
  - Insurance issue [None]
  - Vomiting [None]
  - Nausea [None]
  - Swelling [None]
  - Haemorrhage [None]
